FAERS Safety Report 7636064-1 (Version None)
Quarter: 2011Q3

REPORT INFORMATION
  Report Type: 
  Country: None (occurrence: None)
  Receive Date: 20110726
  Receipt Date: 20110722
  Transmission Date: 20111222
  Serious: Yes (Other)
  Sender: FDA-Public Use
  Company Number: US-PFIZER INC-2011167204

PATIENT
  Sex: Female

DRUGS (2)
  1. CHANTIX [Suspect]
     Dosage: UNK
     Dates: start: 20110101, end: 20110101
  2. CHANTIX [Suspect]
     Dosage: UNK
     Dates: start: 20110101

REACTIONS (3)
  - AGGRESSION [None]
  - EMOTIONAL DISORDER [None]
  - PANIC ATTACK [None]
